FAERS Safety Report 9980941 (Version 1)
Quarter: 2014Q1

REPORT INFORMATION
  Report Type: Spontaneous
  Country: US (occurrence: US)
  Receive Date: 20140307
  Receipt Date: 20140307
  Transmission Date: 20141002
  Serious: No
  Sender: FDA-Public Use
  Company Number: US-GLAXOSMITHKLINE-A1041926A

PATIENT
  Sex: Female

DRUGS (7)
  1. REQUIP [Suspect]
     Indication: RESTLESS LEGS SYNDROME
     Dosage: 2MG AT NIGHT
     Route: 048
     Dates: start: 2011
  2. SEROQUEL [Concomitant]
  3. LAMICTAL [Concomitant]
  4. NEXIUM [Concomitant]
  5. MAXALT [Concomitant]
  6. LORTAB [Concomitant]
  7. XANAX [Concomitant]

REACTIONS (1)
  - Drug ineffective [Not Recovered/Not Resolved]
